FAERS Safety Report 17500736 (Version 1)
Quarter: 2020Q1

REPORT INFORMATION
  Report Type: Spontaneous
  Country: US (occurrence: US)
  Receive Date: 20200224
  Receipt Date: 20200224
  Transmission Date: 20200409
  Serious: Yes (Other)
  Sender: FDA-Public Use
  Company Number: None

PATIENT
  Age: 69 Year
  Sex: Male
  Weight: 73.94 kg

DRUGS (3)
  1. OLMESARTAN [Concomitant]
     Active Substance: OLMESARTAN
  2. EZETIMIBE. [Concomitant]
     Active Substance: EZETIMIBE
  3. SULFASALAZINE DR 500MG [Suspect]
     Active Substance: SULFASALAZINE
     Indication: STAPHYLOCOCCAL SCALDED SKIN SYNDROME
     Dosage: ?          QUANTITY:2 DAILY;?
     Route: 048
     Dates: start: 20191110, end: 20191201

REACTIONS (2)
  - Depression [None]
  - Nightmare [None]

NARRATIVE: CASE EVENT DATE: 20191201
